FAERS Safety Report 20456219 (Version 2)
Quarter: 2022Q1

REPORT INFORMATION
  Report Type: Spontaneous
  Country: US (occurrence: US)
  Receive Date: 20220210
  Receipt Date: 20220228
  Transmission Date: 20220423
  Serious: Yes (Hospitalization, Other)
  Sender: FDA-Public Use
  Company Number: US-PFIZER INC-202200223521

PATIENT
  Age: 20 Year
  Sex: Male
  Weight: 58 kg

DRUGS (17)
  1. PAXLOVID [Suspect]
     Active Substance: NIRMATRELVIR\RITONAVIR
     Indication: COVID-19
     Dosage: 2 X/DAY
     Route: 048
     Dates: start: 20220130, end: 20220203
  2. VINCRISTINE SULFATE [Concomitant]
     Active Substance: VINCRISTINE SULFATE
     Dosage: 2 MG
     Dates: start: 20210902, end: 20210903
  3. VINCRISTINE SULFATE [Concomitant]
     Active Substance: VINCRISTINE SULFATE
     Dosage: 2 MG
     Route: 042
     Dates: start: 20211007, end: 20211008
  4. VINCRISTINE SULFATE [Concomitant]
     Active Substance: VINCRISTINE SULFATE
     Dosage: 2 MG
     Route: 042
     Dates: start: 20211111, end: 20211112
  5. VINCRISTINE SULFATE [Concomitant]
     Active Substance: VINCRISTINE SULFATE
     Dosage: 2 MG
     Route: 042
     Dates: start: 20220127
  6. DOXORUBICIN HYDROCHLORIDE [Concomitant]
     Active Substance: DOXORUBICIN HYDROCHLORIDE
     Dosage: 61 MG
     Dates: start: 20210902, end: 20210903
  7. DOXORUBICIN HYDROCHLORIDE [Concomitant]
     Active Substance: DOXORUBICIN HYDROCHLORIDE
     Dosage: 61 MG, DAILY
     Dates: start: 20211007, end: 20211008
  8. DOXORUBICIN HYDROCHLORIDE [Concomitant]
     Active Substance: DOXORUBICIN HYDROCHLORIDE
     Dosage: 61 MG, DAILY
     Dates: start: 20211111, end: 20211112
  9. DOXORUBICIN HYDROCHLORIDE [Concomitant]
     Active Substance: DOXORUBICIN HYDROCHLORIDE
     Dosage: 61 MG, DAILY
     Dates: start: 20220127, end: 20220128
  10. CYCLOPHOSPHAMIDE [Concomitant]
     Active Substance: CYCLOPHOSPHAMIDE
     Dosage: 2000 MG
     Dates: start: 20210902, end: 20210903
  11. CYCLOPHOSPHAMIDE [Concomitant]
     Active Substance: CYCLOPHOSPHAMIDE
     Dosage: 2000 MG
     Dates: start: 20211007, end: 20211008
  12. CYCLOPHOSPHAMIDE [Concomitant]
     Active Substance: CYCLOPHOSPHAMIDE
     Dosage: 2000 MG
     Dates: start: 20211111, end: 20211112
  13. CYCLOPHOSPHAMIDE [Concomitant]
     Active Substance: CYCLOPHOSPHAMIDE
     Dosage: 2000 MG
     Dates: start: 20220127
  14. APREPITANT [Concomitant]
     Active Substance: APREPITANT
     Dosage: 125 MG
     Route: 048
     Dates: start: 20220127, end: 20220128
  15. APREPITANT [Concomitant]
     Active Substance: APREPITANT
     Dosage: 85 MG
     Route: 048
     Dates: start: 20220127, end: 20220128
  16. GRANISETRONUM [Concomitant]
     Dosage: 1 MG (IV/PO Q12H PRN)
     Dates: start: 20220127, end: 20220128
  17. FULPHILA [PEGFILGRASTIM] [Concomitant]
     Dosage: 6 MG
     Dates: start: 20220129

REACTIONS (4)
  - Myelosuppression [Unknown]
  - Haemoglobin decreased [Unknown]
  - Platelet count decreased [Unknown]
  - Fatigue [Unknown]

NARRATIVE: CASE EVENT DATE: 20220203
